FAERS Safety Report 22773463 (Version 6)
Quarter: 2023Q4

REPORT INFORMATION
  Report Type: Spontaneous
  Country: US (occurrence: US)
  Receive Date: 20230801
  Receipt Date: 20231212
  Transmission Date: 20240109
  Serious: No
  Sender: FDA-Public Use
  Company Number: US-PFIZER INC-PV202300129759

PATIENT
  Age: 68 Year
  Sex: Male

DRUGS (1)
  1. BRAFTOVI [Suspect]
     Active Substance: ENCORAFENIB
     Indication: Rectal cancer
     Dosage: 300 MG, DAILY (75 MG CAPS TAKE 4 CAPS PO Q DAILY)
     Route: 048

REACTIONS (1)
  - Neoplasm progression [Unknown]
